FAERS Safety Report 5032976-6 (Version None)
Quarter: 2006Q2

REPORT INFORMATION
  Report Type: 
  Country: None (occurrence: None)
  Receive Date: 20060515
  Receipt Date: 20060308
  Transmission Date: 20061013
  Serious: No
  Sender: FDA-Public Use
  Company Number: S06-USA-01042-01

PATIENT
  Age: 81 Year
  Sex: Female

DRUGS (2)
  1. NAMENDA [Suspect]
     Indication: MEMORY IMPAIRMENT
     Dosage: 5 MG QD PO
     Route: 048
     Dates: start: 20060304
  2. BLOOD PRESSURE MEDICATION (NOS) [Concomitant]

REACTIONS (1)
  - DIZZINESS [None]
